FAERS Safety Report 5406401-7 (Version None)
Quarter: 2007Q3

REPORT INFORMATION
  Report Type: 
  Country: None (occurrence: None)
  Receive Date: 20070806
  Receipt Date: 20070730
  Transmission Date: 20080115
  Serious: Yes (Hospitalization, Other)
  Sender: FDA-Public Use
  Company Number: ET-BOEHRINGER INGELHEIM PHARMACEUTICALS, INC.-2007-DE-01645GD

PATIENT
  Age: 26 Year
  Sex: Male

DRUGS (4)
  1. NEVIRAPINE [Suspect]
     Indication: HIV INFECTION
     Dates: start: 20040201
  2. STAVUDINE [Suspect]
     Indication: HIV INFECTION
     Dates: start: 20040201
  3. LAMIVUDINE [Suspect]
     Indication: HIV INFECTION
     Dates: start: 20040201
  4. SODIUM STIBOGLUCONATE [Concomitant]
     Indication: VISCERAL LEISHMANIASIS

REACTIONS (6)
  - CONJUNCTIVAL OEDEMA [None]
  - CUTANEOUS LEISHMANIASIS [None]
  - IMMUNE RECONSTITUTION SYNDROME [None]
  - MOUTH ULCERATION [None]
  - SKIN NODULE [None]
  - VISCERAL LEISHMANIASIS [None]
